FAERS Safety Report 16716147 (Version 4)
Quarter: 2019Q4

REPORT INFORMATION
  Report Type: Spontaneous
  Country: JP (occurrence: JP)
  Receive Date: 20190819
  Receipt Date: 20191205
  Transmission Date: 20200122
  Serious: Yes (Death, Life-Threatening)
  Sender: FDA-Public Use
  Company Number: JP-DSJP-DSJ-2019-131079

PATIENT

DRUGS (69)
  1. MIGLITOL. [Concomitant]
     Active Substance: MIGLITOL
     Dosage: 50 MG, TID
     Dates: start: 20190508, end: 20190509
  2. SOLYUGEN F [Concomitant]
     Active Substance: CALCIUM CHLORIDE\POTASSIUM CHLORIDE\SODIUM ACETATE\SODIUM CHLORIDE
     Indication: FLUID RETENTION
     Dosage: 500 ML, BID
     Route: 041
     Dates: start: 20190414, end: 20190418
  3. SOLDEM 3A [Concomitant]
     Active Substance: CARBOHYDRATES\POTASSIUM CHLORIDE\SODIUM CHLORIDE\SODIUM LACTATE
     Dosage: 500 ML, BID
     Route: 041
     Dates: start: 20190419, end: 20190421
  4. SOLDEM 3A [Concomitant]
     Active Substance: CARBOHYDRATES\POTASSIUM CHLORIDE\SODIUM CHLORIDE\SODIUM LACTATE
     Dosage: 500 ML, QD
     Route: 041
     Dates: start: 20190509, end: 20190509
  5. CANAGLU TABLETS 100MG [Suspect]
     Active Substance: CANAGLIFLOZIN
     Dosage: 100 MG, QD
     Dates: start: 20190508, end: 20190509
  6. E KEPPRA [Concomitant]
     Active Substance: LEVETIRACETAM
     Dosage: 500 MG, BID
     Dates: start: 20190423, end: 20190508
  7. METGLUCO [Concomitant]
     Active Substance: METFORMIN HYDROCHLORIDE
     Indication: TYPE 2 DIABETES MELLITUS
     Dosage: 250 MG, BID
     Dates: start: 20190418, end: 20190421
  8. BIO-THREE [Concomitant]
     Active Substance: HERBALS
     Dosage: 1 DF, BID
     Dates: start: 20190509, end: 20190509
  9. SEPAMIT [Concomitant]
     Active Substance: NIFEDIPINE
     Dosage: 10 MG, TID
     Dates: start: 20190419, end: 20190420
  10. DICLOFENAC SODIUM. [Concomitant]
     Active Substance: DICLOFENAC SODIUM
     Indication: ANTIPYRESIS
     Dosage: 25 MG, QD
     Route: 054
     Dates: start: 20190425
  11. SOLYUGEN F [Concomitant]
     Active Substance: CALCIUM CHLORIDE\POTASSIUM CHLORIDE\SODIUM ACETATE\SODIUM CHLORIDE
     Dosage: 500 ML, 6 TMS EVERY 1D
     Route: 041
     Dates: start: 20190429, end: 20190429
  12. SOLYUGEN F [Concomitant]
     Active Substance: CALCIUM CHLORIDE\POTASSIUM CHLORIDE\SODIUM ACETATE\SODIUM CHLORIDE
     Dosage: 500 ML, 5 TMS EVERY 1D
     Route: 041
     Dates: start: 20190430, end: 20190430
  13. SOLDEM 3A [Concomitant]
     Active Substance: CARBOHYDRATES\POTASSIUM CHLORIDE\SODIUM CHLORIDE\SODIUM LACTATE
     Indication: FLUID RETENTION
     Dosage: 500 ML, QD
     Route: 041
     Dates: start: 20190414, end: 20190418
  14. FLUITRAN [Concomitant]
     Active Substance: TRICHLORMETHIAZIDE
     Indication: HYPERTENSION
     Dosage: 2 MG, QD
     Dates: start: 20190418, end: 20190427
  15. MIGLITOL. [Concomitant]
     Active Substance: MIGLITOL
     Indication: TYPE 2 DIABETES MELLITUS
     Dosage: 50 MG, TID
     Dates: start: 20190424, end: 20190427
  16. MIYA-BM [Concomitant]
     Active Substance: CLOSTRIDIUM BUTYRICUM SPORES STRAIN M-55
     Indication: DIARRHOEA
     Dosage: 1 G, QD
     Dates: start: 20190425, end: 20190425
  17. MIYA-BM [Concomitant]
     Active Substance: CLOSTRIDIUM BUTYRICUM SPORES STRAIN M-55
     Dosage: 1 G, BID
     Dates: start: 20190509, end: 20190509
  18. SEPAMIT [Concomitant]
     Active Substance: NIFEDIPINE
     Dosage: 10 MG, QD
     Dates: start: 20190421
  19. SOLDEM 3A [Concomitant]
     Active Substance: CARBOHYDRATES\POTASSIUM CHLORIDE\SODIUM CHLORIDE\SODIUM LACTATE
     Dosage: 500 ML, BID
     Route: 041
     Dates: start: 20190426, end: 20190426
  20. LANSOPRAZOL [Concomitant]
     Active Substance: LANSOPRAZOLE
     Dosage: 15 MG, QD
     Dates: start: 20190502
  21. E KEPPRA [Concomitant]
     Active Substance: LEVETIRACETAM
     Indication: SEIZURE PROPHYLAXIS
     Dosage: 500 MG, BID
     Dates: start: 20190416, end: 20190422
  22. ASPARA POTASSIUM [Concomitant]
     Active Substance: POTASSIUM ASPARTATE
     Dosage: 300 MG, TID
     Dates: start: 20190417, end: 20190508
  23. BIO-THREE [Concomitant]
     Active Substance: HERBALS
     Indication: DIARRHOEA
     Dosage: 1 DF, QD
     Dates: start: 20190427, end: 20190427
  24. CALONAL [Concomitant]
     Active Substance: ACETAMINOPHEN
     Indication: ANALGESIC THERAPY
     Dosage: 400 MG, QD
     Dates: start: 20190419
  25. SOLDEM 3A [Concomitant]
     Active Substance: CARBOHYDRATES\POTASSIUM CHLORIDE\SODIUM CHLORIDE\SODIUM LACTATE
     Dosage: 500 ML, QD
     Route: 041
     Dates: start: 20190427, end: 20190427
  26. HUMULIN R [Concomitant]
     Active Substance: INSULIN HUMAN
     Indication: DIABETES MELLITUS
     Dosage: UNK
     Route: 058
     Dates: start: 20190414
  27. AMLODIPINE                         /00972402/ [Concomitant]
     Active Substance: AMLODIPINE BESYLATE
     Indication: HYPERTENSION
     Dosage: 5 MG, QD
     Dates: start: 20190415, end: 20190416
  28. ASPARA POTASSIUM [Concomitant]
     Active Substance: POTASSIUM ASPARTATE
     Indication: HYPOKALAEMIA
     Dosage: 300 MG, BID
     Dates: start: 20190416, end: 20190416
  29. TENELIA [Concomitant]
     Active Substance: TENELIGLIPTIN
     Indication: TYPE 2 DIABETES MELLITUS
     Dosage: 20 MG, QD
     Dates: start: 20190423, end: 20190427
  30. MOSAPRIDE CITRATE [Concomitant]
     Active Substance: MOSAPRIDE CITRATE
     Indication: DIARRHOEA
     Dosage: 5 MG, QD
     Dates: start: 20190427, end: 20190427
  31. MOSAPRIDE CITRATE [Concomitant]
     Active Substance: MOSAPRIDE CITRATE
     Dosage: 5 MG, TID
     Dates: start: 20190428, end: 20190508
  32. MOSAPRIDE CITRATE [Concomitant]
     Active Substance: MOSAPRIDE CITRATE
     Dosage: 5 MG, BID
     Dates: start: 20190509, end: 20190509
  33. DICLOFENAC SODIUM. [Concomitant]
     Active Substance: DICLOFENAC SODIUM
     Indication: ANALGESIC THERAPY
     Dosage: 25 MG, QD
     Route: 054
     Dates: start: 20190414
  34. SOLDEM 3A [Concomitant]
     Active Substance: CARBOHYDRATES\POTASSIUM CHLORIDE\SODIUM CHLORIDE\SODIUM LACTATE
     Dosage: 500 ML, QD
     Route: 041
     Dates: start: 20190422, end: 20190423
  35. SOLDEM 3A [Concomitant]
     Active Substance: CARBOHYDRATES\POTASSIUM CHLORIDE\SODIUM CHLORIDE\SODIUM LACTATE
     Dosage: 500 ML, BID
     Route: 041
     Dates: start: 20190507, end: 20190508
  36. HUMULIN R [Concomitant]
     Active Substance: INSULIN HUMAN
     Indication: DIABETES MELLITUS MANAGEMENT
  37. TRESIBA [Concomitant]
     Active Substance: INSULIN DEGLUDEC
     Indication: DIABETES MELLITUS MANAGEMENT
  38. OLMETEC OD TABLETS 20MG [Suspect]
     Active Substance: OLMESARTAN MEDOXOMIL
     Indication: HYPERTENSION
     Dosage: 20 MG, QD
     Dates: start: 20190415, end: 20190422
  39. CANAGLU TABLETS 100MG [Suspect]
     Active Substance: CANAGLIFLOZIN
     Dosage: 100 MG, QD
     Dates: start: 20190501, end: 20190502
  40. AMLODIPINE                         /00972402/ [Concomitant]
     Active Substance: AMLODIPINE BESYLATE
     Dosage: 5 MG, QD
     Dates: start: 20190425, end: 20190427
  41. SEPAMIT [Concomitant]
     Active Substance: NIFEDIPINE
     Dosage: 10 MG, BID
     Dates: start: 20190418
  42. LOXOPROFEN EMEC [Concomitant]
     Active Substance: LOXOPROFEN
     Dosage: 60 MG, QD
     Dates: start: 20190421
  43. LOXOPROFEN EMEC [Concomitant]
     Active Substance: LOXOPROFEN
     Dosage: 60 MG, QD
     Dates: start: 20190427
  44. CALONAL [Concomitant]
     Active Substance: ACETAMINOPHEN
     Indication: ANTIPYRESIS
  45. SOLYUGEN F [Concomitant]
     Active Substance: CALCIUM CHLORIDE\POTASSIUM CHLORIDE\SODIUM ACETATE\SODIUM CHLORIDE
     Indication: DEHYDRATION
     Dosage: 500 ML, QD
     Route: 041
     Dates: start: 20190413, end: 20190413
  46. SOLYUGEN F [Concomitant]
     Active Substance: CALCIUM CHLORIDE\POTASSIUM CHLORIDE\SODIUM ACETATE\SODIUM CHLORIDE
     Dosage: 500 ML, QID
     Route: 041
     Dates: start: 20190428, end: 20190428
  47. OLMETEC OD TABLETS 20MG [Suspect]
     Active Substance: OLMESARTAN MEDOXOMIL
     Dosage: 40 MG, QD
     Dates: start: 20190423, end: 20190427
  48. FUROSEMIDE EMEC [Concomitant]
     Indication: HYPERTENSION
     Dosage: 40 MG, QD
     Dates: start: 20190416, end: 20190419
  49. FUROSEMIDE EMEC [Concomitant]
     Dosage: 20 MG, QD
     Dates: start: 20190421, end: 20190421
  50. LANSOPRAZOL [Concomitant]
     Active Substance: LANSOPRAZOLE
     Indication: PROPHYLAXIS AGAINST GASTROINTESTINAL ULCER
     Dosage: 15 MG, QD
     Dates: start: 20190416, end: 20190424
  51. MIYA-BM [Concomitant]
     Active Substance: CLOSTRIDIUM BUTYRICUM SPORES STRAIN M-55
     Dosage: 1 G, TID
     Dates: start: 20190425, end: 20190508
  52. SEPAMIT [Concomitant]
     Active Substance: NIFEDIPINE
     Indication: HYPERTENSION
     Dosage: 10 MG, TID
     Dates: start: 20190417
  53. NOVORAPID [Concomitant]
     Active Substance: INSULIN ASPART
     Indication: DIABETES MELLITUS
     Dosage: UNK
     Route: 058
     Dates: start: 20190419, end: 20190423
  54. CANAGLU TABLETS 100MG [Suspect]
     Active Substance: CANAGLIFLOZIN
     Indication: DIABETES MELLITUS
     Dosage: 100 MG, QD
     Dates: start: 20190422, end: 20190427
  55. AMLODIPINE                         /00972402/ [Concomitant]
     Active Substance: AMLODIPINE BESYLATE
     Dosage: 10 MG, QD
     Dates: start: 20190417, end: 20190424
  56. DOXAZOSIN EMEC [Concomitant]
     Indication: HYPERTENSION
     Dosage: 1 MG, QD
     Dates: start: 20190419, end: 20190422
  57. DOXAZOSIN EMEC [Concomitant]
     Dosage: 2 MG, QD
     Dates: start: 20190423, end: 20190423
  58. E KEPPRA [Concomitant]
     Active Substance: LEVETIRACETAM
     Dosage: 500 MG, QD
     Dates: start: 20190509, end: 20190509
  59. ASPARA POTASSIUM [Concomitant]
     Active Substance: POTASSIUM ASPARTATE
     Dosage: 300 MG, QD
     Dates: start: 20190423, end: 20190423
  60. METGLUCO [Concomitant]
     Active Substance: METFORMIN HYDROCHLORIDE
     Dosage: 250 MG, QD
     Dates: start: 20190422, end: 20190423
  61. TENELIA [Concomitant]
     Active Substance: TENELIGLIPTIN
     Dosage: 20 MG, QD
     Dates: start: 20190501
  62. BIO-THREE [Concomitant]
     Active Substance: HERBALS
     Dosage: 1 DF, TID
     Dates: start: 20190428, end: 20190508
  63. SEPAMIT [Concomitant]
     Active Substance: NIFEDIPINE
     Dosage: 10 MG, QD
     Dates: start: 20190425
  64. SEPAMIT [Concomitant]
     Active Substance: NIFEDIPINE
     Dosage: 10 MG, QD
     Dates: start: 20190502
  65. SODIUM PICOSULFATE [Concomitant]
     Active Substance: SODIUM PICOSULFATE
     Indication: CONSTIPATION
     Dosage: AS APPROPRIATE, QD
     Dates: start: 20190418
  66. LOXOPROFEN EMEC [Concomitant]
     Active Substance: LOXOPROFEN
     Indication: ANALGESIC THERAPY
     Dosage: 60 MG, QD
     Dates: start: 20190415, end: 20190416
  67. LOXOPROFEN EMEC [Concomitant]
     Active Substance: LOXOPROFEN
     Indication: ANTIPYRESIS
     Dosage: 60 MG, TID
     Dates: start: 20190418
  68. TRESIBA [Concomitant]
     Active Substance: INSULIN DEGLUDEC
     Indication: DIABETES MELLITUS
     Dosage: UNK
     Route: 058
     Dates: start: 20190419
  69. NOVORAPID [Concomitant]
     Active Substance: INSULIN ASPART
     Indication: DIABETES MELLITUS MANAGEMENT
     Dosage: UNK
     Route: 058
     Dates: start: 20190501

REACTIONS (3)
  - Hyperglycaemia [Unknown]
  - Diarrhoea [Unknown]
  - Dehydration [Recovering/Resolving]

NARRATIVE: CASE EVENT DATE: 20190424
